FAERS Safety Report 15026760 (Version 4)
Quarter: 2019Q3

REPORT INFORMATION
  Report Type: Spontaneous
  Country: JP (occurrence: JP)
  Receive Date: 20180618
  Receipt Date: 20190701
  Transmission Date: 20191004
  Serious: Yes (Other)
  Sender: FDA-Public Use
  Company Number: JP-SUN PHARMACEUTICAL INDUSTRIES LTD-2018R1-175869

PATIENT
  Sex: Male

DRUGS (4)
  1. DOCETAXEL. [Suspect]
     Active Substance: DOCETAXEL
     Indication: PROSTATE CANCER
  2. PREDNISOLONE. [Suspect]
     Active Substance: PREDNISOLONE
     Indication: PROSTATE CANCER
  3. DOCETAXEL. [Suspect]
     Active Substance: DOCETAXEL
     Indication: SMALL CELL CARCINOMA
     Dosage: UNK
     Route: 016
  4. PREDNISOLONE. [Suspect]
     Active Substance: PREDNISOLONE
     Indication: SMALL CELL CARCINOMA
     Dosage: UNK
     Route: 065

REACTIONS (2)
  - Bacteraemia [Recovered/Resolved]
  - Helicobacter infection [Recovered/Resolved]
